FAERS Safety Report 23606225 (Version 2)
Quarter: 2024Q2

REPORT INFORMATION
  Report Type: Report from Study
  Country: US (occurrence: US)
  Receive Date: 20240307
  Receipt Date: 20240413
  Transmission Date: 20240716
  Serious: No
  Sender: FDA-Public Use
  Company Number: US-SA-SAC20240304000284

PATIENT
  Age: 48 Year
  Sex: Male

DRUGS (2)
  1. DUPILUMAB [Suspect]
     Active Substance: DUPILUMAB
     Indication: Nasal polyps
     Dosage: 300 MG, QOW
     Route: 058
     Dates: start: 20240209, end: 20240223
  2. XHANCE [Suspect]
     Active Substance: FLUTICASONE PROPIONATE

REACTIONS (7)
  - Headache [Not Recovered/Not Resolved]
  - Abdominal pain upper [Not Recovered/Not Resolved]
  - Dyspepsia [Not Recovered/Not Resolved]
  - Abdominal distension [Not Recovered/Not Resolved]
  - Fatigue [Unknown]
  - Influenza like illness [Not Recovered/Not Resolved]
  - Food poisoning [Unknown]

NARRATIVE: CASE EVENT DATE: 20240101
